FAERS Safety Report 4822611-1 (Version None)
Quarter: 2005Q4

REPORT INFORMATION
  Report Type: 
  Country: None (occurrence: None)
  Receive Date: 20051104
  Receipt Date: 20051024
  Transmission Date: 20060501
  Serious: Yes (Other)
  Sender: FDA-Public Use
  Company Number: HQWYE199924OCT05

PATIENT
  Age: 41 Year
  Sex: Female
  Weight: 59.02 kg

DRUGS (6)
  1. EFFEXOR [Suspect]
     Indication: BIPOLAR DISORDER
     Dosage: ^HIGH^ DOSE
  2. LITHIUM (LITHIUM, ) [Suspect]
     Indication: BIPOLAR DISORDER
     Dosage: ^HIGH^ DOSE
  3. PEG-INTRON [Suspect]
     Indication: HEPATITIS C
     Dosage: SUBCUTANEOUS
     Route: 058
     Dates: start: 20050116
  4. REBETOL [Suspect]
     Indication: HEPATITIS C
     Dosage: ORAL
     Route: 048
     Dates: start: 20050116
  5. RISPERDAL [Concomitant]
  6. ZOLOFT [Concomitant]

REACTIONS (5)
  - FALL [None]
  - HALLUCINATION, VISUAL [None]
  - HEAD INJURY [None]
  - HEPATIC FUNCTION ABNORMAL [None]
  - REFUSAL OF TREATMENT BY PATIENT [None]
